FAERS Safety Report 8450579-8 (Version None)
Quarter: 2012Q2

REPORT INFORMATION
  Report Type: 
  Country: None (occurrence: None)
  Receive Date: 20120620
  Receipt Date: 20120614
  Transmission Date: 20120825
  Serious: Yes (Other)
  Sender: FDA-Public Use
  Company Number: US-PFIZER INC-2012144357

PATIENT
  Sex: Female
  Weight: 77.098 kg

DRUGS (11)
  1. BUMEX [Concomitant]
     Indication: CARDIOVASCULAR DISORDER
     Dosage: UNK
  2. CYMBALTA [Concomitant]
     Indication: ANXIETY
     Dosage: UNK
  3. CYMBALTA [Concomitant]
     Indication: DEPRESSION
  4. LYRICA [Suspect]
     Indication: FIBROMYALGIA
     Dosage: 25 MG, 2X/DAY
     Route: 048
     Dates: start: 20110101
  5. DIGOXIN [Concomitant]
     Indication: CARDIOVASCULAR DISORDER
     Dosage: UNK
  6. DEXLANSOPRAZOLE [Concomitant]
     Indication: GASTROOESOPHAGEAL REFLUX DISEASE
     Dosage: UNK
  7. NOVOLOG [Concomitant]
     Indication: DIABETES MELLITUS
     Dosage: 60 IU, 3X/DAY
  8. PAXIL [Concomitant]
     Indication: ANXIETY
     Dosage: UNK
  9. ALBUTEROL [Concomitant]
     Indication: ASTHMA
     Dosage: UNK
  10. PAXIL [Concomitant]
     Indication: DEPRESSION
  11. LYRICA [Suspect]
     Indication: MIGRAINE
     Dosage: 50 MG, 2X/DAY
     Route: 048
     Dates: start: 20120401

REACTIONS (8)
  - SUICIDE ATTEMPT [None]
  - OEDEMA PERIPHERAL [None]
  - DRY MOUTH [None]
  - DIZZINESS [None]
  - DYSPNOEA [None]
  - VISION BLURRED [None]
  - SUICIDAL IDEATION [None]
  - PALPITATIONS [None]
